FAERS Safety Report 12613958 (Version 1)
Quarter: 2016Q3

REPORT INFORMATION
  Report Type: Spontaneous
  Country: US (occurrence: US)
  Receive Date: 20160802
  Receipt Date: 20160802
  Transmission Date: 20161109
  Serious: No
  Sender: FDA-Public Use
  Company Number: US-009507513-1607USA007715

PATIENT
  Sex: Male

DRUGS (3)
  1. HOMEOPATHIC MEDICATIONS (UNSPECIFIED) [Concomitant]
  2. SINEMET [Suspect]
     Active Substance: CARBIDOPA\LEVODOPA
     Indication: PARKINSONISM
     Dosage: ONE HALF OF 25MG/100 MG TABLET TWICE DAILY
     Route: 048
     Dates: start: 201510
  3. POTASSIUM (UNSPECIFIED) [Concomitant]
     Active Substance: POTASSIUM

REACTIONS (4)
  - Urinary tract disorder [Unknown]
  - Renal disorder [Unknown]
  - Flatulence [Unknown]
  - Nausea [Unknown]
